FAERS Safety Report 24697818 (Version 2)
Quarter: 2025Q1

REPORT INFORMATION
  Report Type: Spontaneous
  Country: US (occurrence: US)
  Receive Date: 20241204
  Receipt Date: 20250313
  Transmission Date: 20250408
  Serious: No
  Sender: SANOFI AVENTIS
  Company Number: US-SA-2024SA353708

PATIENT
  Sex: Female

DRUGS (1)
  1. DUPIXENT [Suspect]
     Active Substance: DUPILUMAB
     Indication: Dermatitis atopic
     Dosage: 300 MG, QOW
     Route: 058
     Dates: start: 202304

REACTIONS (6)
  - Sneezing [Unknown]
  - Rhinorrhoea [Unknown]
  - Eye pruritus [Unknown]
  - Eye irritation [Unknown]
  - Dermatitis atopic [Recovering/Resolving]
  - Therapeutic response shortened [Recovering/Resolving]
